FAERS Safety Report 23858297 (Version 1)
Quarter: 2024Q2

REPORT INFORMATION
  Report Type: Spontaneous
  Country: RU (occurrence: RU)
  Receive Date: 20240515
  Receipt Date: 20240515
  Transmission Date: 20240722
  Serious: Yes (Other)
  Sender: FDA-Public Use
  Company Number: RU-PFIZER INC-202400107310

PATIENT
  Sex: Male

DRUGS (1)
  1. LORLATINIB [Suspect]
     Active Substance: LORLATINIB

REACTIONS (1)
  - Polyneuropathy [Unknown]
